FAERS Safety Report 6087961-2 (Version None)
Quarter: 2009Q1

REPORT INFORMATION
  Report Type: 
  Country: None (occurrence: None)
  Receive Date: 20090213
  Receipt Date: 20090204
  Transmission Date: 20090719
  Serious: Yes (Other)
  Sender: FDA-Public Use
  Company Number: CHPA2009US03008

PATIENT
  Age: 5 Year

DRUGS (1)
  1. TRIAMINIC SRT [Suspect]
     Indication: COUGH
     Dosage: 1 TSP, PRN, ORAL
     Route: 048

REACTIONS (2)
  - INCORRECT DOSE ADMINISTERED [None]
  - TYPE 1 DIABETES MELLITUS [None]
